FAERS Safety Report 12054158 (Version 1)
Quarter: 2016Q1

REPORT INFORMATION
  Report Type: Spontaneous
  Country: FR (occurrence: FR)
  Receive Date: 20160209
  Receipt Date: 20160209
  Transmission Date: 20160526
  Serious: Yes (Life-Threatening, Hospitalization)
  Sender: FDA-Public Use
  Company Number: FR-ASTRAZENECA-2016SE13248

PATIENT
  Age: 6721 Day
  Sex: Male

DRUGS (9)
  1. XEROQUEL [Suspect]
     Active Substance: QUETIAPINE FUMARATE
     Route: 048
  2. XEROQUEL [Suspect]
     Active Substance: QUETIAPINE FUMARATE
     Route: 048
     Dates: start: 20160105, end: 20160105
  3. PAROXETINE [Suspect]
     Active Substance: PAROXETINE\PAROXETINE HYDROCHLORIDE
     Route: 048
     Dates: start: 20160105, end: 20160105
  4. LOXAPAC [Suspect]
     Active Substance: LOXAPINE SUCCINATE
     Route: 048
     Dates: start: 20160105, end: 20160105
  5. TEGRETOL LP [Suspect]
     Active Substance: CARBAMAZEPINE
     Route: 048
  6. AVLOCARDYL [Suspect]
     Active Substance: PROPRANOLOL HYDROCHLORIDE
     Route: 048
     Dates: start: 20160105, end: 20160105
  7. TEGRETOL LP [Suspect]
     Active Substance: CARBAMAZEPINE
     Route: 048
     Dates: start: 20160105, end: 20160105
  8. MICARDIS [Suspect]
     Active Substance: TELMISARTAN
     Route: 048
     Dates: start: 20160105, end: 20160105
  9. LOXAPAC [Suspect]
     Active Substance: LOXAPINE SUCCINATE
     Route: 048

REACTIONS (3)
  - Hypotension [Recovered/Resolved]
  - Cardiogenic shock [Recovered/Resolved]
  - Bradycardia [Recovered/Resolved]

NARRATIVE: CASE EVENT DATE: 20160105
